FAERS Safety Report 14422564 (Version 4)
Quarter: 2018Q1

REPORT INFORMATION
  Report Type: Spontaneous
  Country: US (occurrence: US)
  Receive Date: 20180123
  Receipt Date: 20180328
  Transmission Date: 20180509
  Serious: Yes (Life-Threatening, Hospitalization, Other)
  Sender: FDA-Public Use
  Company Number: US-LUPIN PHARMACEUTICALS INC.-2018-00233

PATIENT
  Age: 6 Month
  Sex: Female

DRUGS (1)
  1. LAMOTRIGINE TABLETS [Suspect]
     Active Substance: LAMOTRIGINE
     Indication: PRODUCT USED FOR UNKNOWN INDICATION
     Dosage: UNK (5 TO 10 PILLS APPEARED TO HAVE BEEN ^SUCKED^ ON)
     Route: 048

REACTIONS (2)
  - Accidental overdose [Unknown]
  - Status epilepticus [Recovered/Resolved]
